FAERS Safety Report 23965091 (Version 2)
Quarter: 2024Q3

REPORT INFORMATION
  Report Type: Report from Study
  Country: IN (occurrence: IN)
  Receive Date: 20240612
  Receipt Date: 20240823
  Transmission Date: 20241017
  Serious: Yes (Hospitalization)
  Sender: ROCHE
  Company Number: IN-ROCHE-3578967

PATIENT
  Age: 74 Year
  Sex: Male

DRUGS (1)
  1. TECENTRIQ [Suspect]
     Active Substance: ATEZOLIZUMAB
     Indication: Hepatocellular carcinoma
     Route: 041
     Dates: start: 20240124

REACTIONS (4)
  - Nervous system disorder [Unknown]
  - Malaise [Unknown]
  - Cortisol decreased [Unknown]
  - Nervous system disorder [Unknown]
